FAERS Safety Report 10398687 (Version 1)
Quarter: 2014Q1

REPORT INFORMATION
  Report Type: Spontaneous
  Country: US (occurrence: None)
  Receive Date: 20130815
  Receipt Date: 20130815
  Transmission Date: 20141002
  Serious: Yes (Hospitalization, Other)
  Sender: FDA-Public Use
  Company Number: ADR-2013-00644

PATIENT
  Sex: Female

DRUGS (1)
  1. BACLOFEN [Suspect]

REACTIONS (1)
  - Overdose [None]
